FAERS Safety Report 15037043 (Version 1)
Quarter: 2018Q2

REPORT INFORMATION
  Report Type: Spontaneous
  Country: US (occurrence: US)
  Receive Date: 20180620
  Receipt Date: 20180620
  Transmission Date: 20180711
  Serious: No
  Sender: FDA-Public Use
  Company Number: US-TEVA-2018-US-903582

PATIENT
  Sex: Female

DRUGS (1)
  1. JINTELI [Suspect]
     Active Substance: ETHINYL ESTRADIOL\NORETHINDRONE ACETATE
     Indication: MENOPAUSAL SYMPTOMS
     Dosage: 1 DF = NORETHINDRONE ACETATE 1 MG + ETHINYL ESTRADIOL 5 MCG
     Route: 065
     Dates: start: 201805

REACTIONS (4)
  - Drug ineffective [Unknown]
  - Insomnia [Unknown]
  - Headache [Unknown]
  - Constipation [Unknown]
